FAERS Safety Report 14243447 (Version 3)
Quarter: 2017Q4

REPORT INFORMATION
  Report Type: Report from Study
  Country: None (occurrence: CO)
  Receive Date: 20171201
  Receipt Date: 20171222
  Transmission Date: 20180321
  Serious: Yes (Other)
  Sender: FDA-Public Use
  Company Number: CO-ABBVIE-17S-036-2179474-00

PATIENT
  Age: 24 Year
  Sex: Female
  Weight: 57 kg

DRUGS (1)
  1. ZEMPLAR [Suspect]
     Active Substance: PARICALCITOL
     Indication: HYPERPARATHYROIDISM SECONDARY
     Route: 048
     Dates: start: 20170301, end: 20171010

REACTIONS (2)
  - Pelvic pain [Recovering/Resolving]
  - Ovarian cyst [Recovering/Resolving]

NARRATIVE: CASE EVENT DATE: 20171111
